FAERS Safety Report 8235082-2 (Version None)
Quarter: 2012Q1

REPORT INFORMATION
  Report Type: 
  Country: None (occurrence: None)
  Receive Date: 20120326
  Receipt Date: 20120321
  Transmission Date: 20120608
  Serious: Yes (Hospitalization)
  Sender: FDA-Public Use
  Company Number: JP-PFIZER INC-2012061396

PATIENT
  Age: 33 Year
  Sex: Female

DRUGS (11)
  1. ZITHROMAX [Suspect]
     Indication: PHARYNGITIS
     Dosage: 2 G, SINGLE
     Route: 048
     Dates: start: 20111004, end: 20111004
  2. ORADOL [Concomitant]
     Indication: SINUSITIS
  3. TRANSAMINE CAP [Concomitant]
     Indication: SINUSITIS
  4. NASONEX [Concomitant]
     Indication: RHINITIS ALLERGIC
     Dosage: 200 UG, 1X/DAY
     Route: 061
     Dates: start: 20111004, end: 20111004
  5. TRANSAMINE CAP [Concomitant]
     Indication: PHARYNGITIS
     Dosage: 250 MG, UNK
     Route: 048
     Dates: start: 20111004, end: 20111004
  6. ORADOL [Concomitant]
     Indication: PHARYNGITIS
     Dosage: UNK
     Route: 048
     Dates: start: 20111004, end: 20111004
  7. BUTIKINON [Concomitant]
     Indication: PHARYNGITIS
     Dosage: 100 MG, UNK
     Route: 048
     Dates: start: 20111004, end: 20111004
  8. HUSCODE [Concomitant]
     Indication: PHARYNGITIS
     Dosage: UNK
     Route: 048
     Dates: start: 20111004, end: 20111004
  9. HUSCODE [Concomitant]
     Indication: SINUSITIS
  10. BUTIKINON [Concomitant]
     Indication: SINUSITIS
  11. ZITHROMAX [Suspect]
     Indication: SINUSITIS

REACTIONS (1)
  - LOSS OF CONSCIOUSNESS [None]
